FAERS Safety Report 16040832 (Version 2)
Quarter: 2019Q1

REPORT INFORMATION
  Report Type: Report from Study
  Country: US (occurrence: US)
  Receive Date: 20190306
  Receipt Date: 20190322
  Transmission Date: 20190418
  Serious: Yes (Other)
  Sender: FDA-Public Use
  Company Number: US-SA-2018SA286491

PATIENT
  Age: 68 Year
  Sex: Female

DRUGS (1)
  1. INSULIN GLARGINE [Suspect]
     Active Substance: INSULIN GLARGINE
     Indication: TYPE 2 DIABETES MELLITUS
     Dosage: 30 IU, QD
     Route: 058

REACTIONS (8)
  - Malaise [Unknown]
  - Eye contusion [Recovered/Resolved]
  - Fall [Unknown]
  - Sciatic nerve injury [Unknown]
  - Contusion [Recovered/Resolved]
  - Asthma [Not Recovered/Not Resolved]
  - Monoplegia [Not Recovered/Not Resolved]
  - Nasopharyngitis [Not Recovered/Not Resolved]

NARRATIVE: CASE EVENT DATE: 201812
